FAERS Safety Report 25963185 (Version 1)
Quarter: 2025Q4

REPORT INFORMATION
  Report Type: Spontaneous
  Country: US (occurrence: None)
  Receive Date: 20251024
  Receipt Date: 20251024
  Transmission Date: 20260118
  Serious: Yes (Hospitalization)
  Sender: FDA-CTU
  Company Number: None

PATIENT
  Age: 74 Year
  Sex: Female
  Weight: 58.5 kg

DRUGS (3)
  1. PIRFENIDONE [Suspect]
     Active Substance: PIRFENIDONE
     Indication: Idiopathic pulmonary fibrosis
     Dosage: OTHER FREQUENCY : THREE TIMES A DAY;?
     Route: 048
     Dates: start: 20250314
  2. CLINDAMYCIN [Suspect]
     Active Substance: CLINDAMYCIN
  3. FLUCONAZOLE [Suspect]
     Active Substance: FLUCONAZOLE

REACTIONS (2)
  - Oral candidiasis [None]
  - Abdominal discomfort [None]

NARRATIVE: CASE EVENT DATE: 20250714
